FAERS Safety Report 7934656-3 (Version None)
Quarter: 2011Q4

REPORT INFORMATION
  Report Type: 
  Country: None (occurrence: None)
  Receive Date: 20111116
  Receipt Date: 20111103
  Transmission Date: 20120403
  Serious: Yes (Hospitalization)
  Sender: FDA-Public Use
  Company Number: 2011SP051746

PATIENT
  Age: 50 Year
  Sex: Female

DRUGS (1)
  1. BOCEPREVIR (SCH-503034) [Suspect]
     Indication: HEPATITIS C

REACTIONS (2)
  - CALCULUS BLADDER [None]
  - HAEMORRHAGE [None]
